FAERS Safety Report 8911086 (Version 3)
Quarter: 2013Q2

REPORT INFORMATION
  Report Type: Spontaneous
  Country: CA (occurrence: CA)
  Receive Date: 20121116
  Receipt Date: 20130410
  Transmission Date: 20140414
  Serious: Yes (Disabling, Other)
  Sender: FDA-Public Use
  Company Number: CA-ASTELLAS-2012US010996

PATIENT
  Sex: Female

DRUGS (1)
  1. PROGRAF [Suspect]
     Indication: LIVER TRANSPLANT
     Dosage: UNK
     Route: 065
     Dates: end: 2009

REACTIONS (4)
  - Liver transplant [Unknown]
  - Knee arthroplasty [Unknown]
  - Calcinosis [Unknown]
  - Soft tissue mass [Not Recovered/Not Resolved]
